FAERS Safety Report 9886568 (Version 2)
Quarter: 2014Q1

REPORT INFORMATION
  Report Type: Report from Study
  Country: US (occurrence: US)
  Receive Date: 20140210
  Receipt Date: 20140210
  Transmission Date: 20141002
  Serious: Yes (Hospitalization, Other)
  Sender: FDA-Public Use
  Company Number: US-TAKEDA-TPA2013A05358

PATIENT
  Age: 66 Year
  Sex: Male
  Weight: 80.9 kg

DRUGS (85)
  1. BLINDED ALLOPURINOL [Suspect]
     Indication: HYPERURICAEMIA
     Dosage: UNK UNK, QD
     Route: 048
     Dates: start: 20111005, end: 20130617
  2. BLINDED FEBUXOSTAT [Suspect]
     Indication: HYPERURICAEMIA
     Dosage: UNK UNK, QD
     Route: 048
     Dates: start: 20111005, end: 20130617
  3. BLINDED ALLOPURINOL [Suspect]
     Dosage: UNK UNK, QD
     Route: 048
     Dates: start: 20130623, end: 20130706
  4. BLINDED FEBUXOSTAT [Suspect]
     Dosage: UNK UNK, QD
     Route: 048
     Dates: start: 20130623, end: 20130706
  5. BLINDED ALLOPURINOL [Suspect]
     Dosage: UNK UNK, QD
     Route: 048
     Dates: start: 20130719, end: 20130803
  6. BLINDED FEBUXOSTAT [Suspect]
     Dosage: UNK UNK, QD
     Route: 048
     Dates: start: 20130719, end: 20130803
  7. BLINDED ALLOPURINOL [Suspect]
     Dosage: UNK UNK, QD
     Route: 048
     Dates: start: 20130804
  8. BLINDED FEBUXOSTAT [Suspect]
     Dosage: UNK UNK, QD
     Route: 048
     Dates: start: 20130804
  9. AMLODIPINE [Concomitant]
     Indication: HYPERTENSION
     Dosage: 5 MG, QD
     Route: 048
     Dates: start: 200307, end: 20130618
  10. AMLODIPINE [Concomitant]
     Indication: CORONARY ARTERY DISEASE
  11. MULTIVITAMIN [Concomitant]
     Indication: SUPPLEMENTATION THERAPY
     Dosage: 1 DF, QD
     Route: 048
     Dates: start: 200307, end: 20130617
  12. ASPIRIN [Concomitant]
     Indication: CARDIOVASCULAR EVENT PROPHYLAXIS
     Dosage: 81 MG, QD
     Route: 048
     Dates: start: 200307, end: 20130622
  13. ASPIRIN [Concomitant]
     Indication: CORONARY ARTERY DISEASE
     Dosage: 325 MG, QD
     Route: 048
     Dates: start: 20130619, end: 20130706
  14. METOPROLOL [Concomitant]
     Indication: HYPERTENSION
     Dosage: 12.5 MG, QOD
     Route: 048
     Dates: start: 20111216, end: 20130617
  15. METOPROLOL [Concomitant]
     Indication: CORONARY ARTERY DISEASE
     Dosage: 6.25 MG, QD
     Route: 048
     Dates: start: 20130617, end: 20130617
  16. METOPROLOL [Concomitant]
     Dosage: 12.5 MG, BID
     Route: 048
     Dates: start: 20130619, end: 20140202
  17. ESSENTIAL ENZYMES [Concomitant]
     Indication: GASTROOESOPHAGEAL REFLUX DISEASE
     Dosage: 1 DF, QD
     Route: 048
     Dates: start: 20120415
  18. LIPITOR [Concomitant]
     Indication: HYPERLIPIDAEMIA
     Dosage: 10 MG, QD
     Route: 048
     Dates: start: 20121201, end: 20130616
  19. LIPITOR [Concomitant]
     Dosage: 20 MG, QD
     Route: 048
     Dates: start: 20130617, end: 20130814
  20. LISINOPRIL [Concomitant]
     Indication: HYPERTENSION
     Dosage: 10 MG, BID
     Route: 048
     Dates: start: 20121201, end: 20130618
  21. VITAMIN E                          /00110501/ [Concomitant]
     Indication: SUPPLEMENTATION THERAPY
     Dosage: 400 MG, BID
     Route: 048
     Dates: start: 200307, end: 20130617
  22. VITAMIN C [Concomitant]
     Indication: SUPPLEMENTATION THERAPY
     Dosage: 500 MG, BID
     Route: 048
     Dates: start: 200307, end: 20130617
  23. LEVETIRACETAM [Concomitant]
     Indication: HAEMORRHAGIC STROKE
     Dosage: 250 MG, BID
     Route: 048
     Dates: start: 20130706, end: 20140115
  24. LEVETIRACETAM [Concomitant]
     Indication: CONVULSION
  25. DOCUSATE SODIUM [Concomitant]
     Indication: CONSTIPATION PROPHYLAXIS
     Dosage: 240 MG, QD
     Route: 048
     Dates: start: 20130620, end: 20130622
  26. DOCUSATE SODIUM [Concomitant]
     Indication: CORONARY ARTERY DISEASE
  27. INDOMETHACIN                       /00003801/ [Concomitant]
     Indication: PAIN PROPHYLAXIS
     Dosage: 25 MG, QD
     Route: 048
     Dates: start: 20130618, end: 20130618
  28. INDOMETHACIN                       /00003801/ [Concomitant]
     Indication: CORONARY ARTERY DISEASE
  29. HUMALOG [Concomitant]
     Indication: HYPERGLYCAEMIA
     Dosage: 1 IU, Q4HR
     Route: 058
     Dates: start: 20130619, end: 20130619
  30. HUMALOG [Concomitant]
     Indication: CORONARY ARTERY DISEASE
     Dosage: 1 IU, QAC AND QHS
     Dates: start: 20130620, end: 20130621
  31. HUMULIN R [Concomitant]
     Indication: HYPERGLYCAEMIA
     Dosage: 10 IU, ONCE
     Route: 042
     Dates: start: 20130618, end: 20130618
  32. HUMULIN R [Concomitant]
     Indication: CORONARY ARTERY DISEASE
  33. ACETAMINOPHEN [Concomitant]
     Indication: CORONARY ARTERY DISEASE
     Dosage: 1000 MG, Q6HR
     Route: 042
     Dates: start: 20130618, end: 20130620
  34. ACETAMINOPHEN [Concomitant]
     Indication: PAIN MANAGEMENT
     Dosage: 325 MG, ONCE
     Route: 048
     Dates: start: 20130621, end: 20130621
  35. IPRATROPIUM BROMIDE [Concomitant]
     Indication: CORONARY ARTERY DISEASE
     Dosage: 2.5 MG, Q6HR
     Route: 050
     Dates: start: 20130618, end: 20130619
  36. IPRATROPIUM BROMIDE [Concomitant]
     Indication: RESPIRATORY DISORDER
  37. AL-MG HYDROXIDE SIMETHICONE [Concomitant]
     Indication: GASTROOESOPHAGEAL REFLUX DISEASE
     Dosage: 30 ML, PRN
     Route: 048
     Dates: start: 20130619, end: 20130619
  38. MIDAZOLAM HCL [Concomitant]
     Indication: CORONARY ARTERY DISEASE
     Dosage: 4 MG, ONCE
     Route: 030
     Dates: start: 20130617, end: 20130617
  39. MIDAZOLAM HCL [Concomitant]
     Indication: ANXIETY
  40. MORPHINE [Concomitant]
     Indication: CORONARY ARTERY DISEASE
     Dosage: 1 MG, PRN
     Route: 042
     Dates: start: 20130618, end: 20130618
  41. MORPHINE [Concomitant]
     Indication: PAIN MANAGEMENT
  42. ONDANSETRON (ZOFRAN) [Concomitant]
     Indication: CORONARY ARTERY DISEASE
     Dosage: 4 MG, PRN
     Route: 042
     Dates: start: 20130618, end: 20130618
  43. ONDANSETRON (ZOFRAN) [Concomitant]
     Indication: NAUSEA
  44. FUROSEMIDE [Concomitant]
     Indication: HYPERTENSION
     Dosage: 40 MG, QD
     Route: 048
     Dates: start: 20130620, end: 20130622
  45. MUPIROCIN [Concomitant]
     Indication: CORONARY ARTERY DISEASE
     Dosage: 1 APPLICATION, TID
     Route: 045
     Dates: start: 20130618, end: 20130619
  46. MUPIROCIN [Concomitant]
     Indication: ANTIBIOTIC PROPHYLAXIS
  47. NEO-POLY MOBI [Concomitant]
     Indication: CORONARY ARTERY DISEASE
     Dosage: 1 PACK TOP, BID
     Route: 061
     Dates: start: 20130619, end: 20130622
  48. NEO-POLY MOBI [Concomitant]
     Indication: ANTIBIOTIC PROPHYLAXIS
  49. PANTOPRAZOLE [Concomitant]
     Indication: GASTROOESOPHAGEAL REFLUX DISEASE
     Dosage: 40 MG, QD
     Route: 048
     Dates: start: 20130617, end: 20130622
  50. SUCRALFATE [Concomitant]
     Indication: GASTROOESOPHAGEAL REFLUX DISEASE
     Dosage: 1 G, QID
     Route: 048
     Dates: start: 20130618, end: 20130622
  51. KLOR-CON 10 (POTASIUM CHLORIDE) [Concomitant]
     Indication: CORONARY ARTERY DISEASE
     Dosage: 20 MEQ, QD
     Route: 048
     Dates: start: 20130620, end: 20130622
  52. KLOR-CON 10 (POTASIUM CHLORIDE) [Concomitant]
     Indication: SUPPLEMENTATION THERAPY
  53. TRAMADOL [Concomitant]
     Indication: CORONARY ARTERY DISEASE
     Dosage: 100 MG, Q6HR
     Route: 048
     Dates: start: 20130619, end: 20130619
  54. TRAMADOL [Concomitant]
     Indication: PAIN MANAGEMENT
  55. PLAVIX [Concomitant]
     Indication: CORONARY ARTERY DISEASE
     Dosage: 600 MG, ONCE
     Route: 048
     Dates: start: 20130617, end: 20130617
  56. PLAVIX [Concomitant]
     Indication: CATHETERISATION CARDIAC
  57. BENADRYL                           /00000402/ [Concomitant]
     Indication: CORONARY ARTERY DISEASE
     Dosage: 50 MG, ONCE
     Route: 048
     Dates: start: 20130617, end: 20130617
  58. BENADRYL                           /00000402/ [Concomitant]
     Indication: CATHETERISATION CARDIAC
  59. VERSED [Concomitant]
     Indication: CORONARY ARTERY DISEASE
     Dosage: 1 MG, PRN
     Route: 042
     Dates: start: 20130617, end: 20130617
  60. VERSED [Concomitant]
     Indication: CATHETERISATION CARDIAC
  61. FENTANYL [Concomitant]
     Indication: CORONARY ARTERY DISEASE
     Dosage: 50 ?G, PRN
     Route: 042
     Dates: start: 20130617, end: 20130617
  62. FENTANYL [Concomitant]
     Indication: CATHETERISATION CARDIAC
  63. CEFAZOLIN [Concomitant]
     Indication: CORONARY ARTERY DISEASE
     Dosage: 2000 MG, Q8HR
     Route: 042
     Dates: start: 20130618, end: 20130619
  64. CEFAZOLIN [Concomitant]
     Indication: ANTIBIOTIC PROPHYLAXIS
  65. GLYCOPYRROLATE                     /00196201/ [Concomitant]
     Indication: GASTROOESOPHAGEAL REFLUX DISEASE
     Dosage: 3 ML, ONCE
     Route: 042
     Dates: start: 20130618, end: 20130618
  66. NEOSTIGMINE METHYLSULFATE [Concomitant]
     Indication: CORONARY ARTERY DISEASE
     Dosage: 3 MG, ONCE
     Route: 042
     Dates: start: 20130618, end: 20130618
  67. NEOSTIGMINE METHYLSULFATE [Concomitant]
     Indication: ANAESTHESIA REVERSAL
  68. PROTAMINE [Concomitant]
     Indication: CORONARY ARTERY DISEASE
     Dosage: 5 ML, ONCE
     Route: 042
     Dates: start: 20130618, end: 20130618
  69. AMIODARONE [Concomitant]
     Indication: CORONARY ARTERY DISEASE
     Dosage: 400 MG, BID
     Route: 048
     Dates: start: 20130618, end: 20130619
  70. AMIODARONE [Concomitant]
     Indication: CARDIOVASCULAR EVENT PROPHYLAXIS
     Dosage: 200 MG, BID
     Route: 048
     Dates: start: 20130620, end: 20130622
  71. REGULAR INSULIN DRIP [Concomitant]
     Indication: CORONARY ARTERY DISEASE
     Dosage: TITRATED, PRN
     Route: 042
     Dates: start: 20130618, end: 20130619
  72. REGULAR INSULIN DRIP [Concomitant]
     Indication: HYPERGLYCAEMIA
  73. VASOPRESSIN [Concomitant]
     Indication: CORONARY ARTERY DISEASE
     Dosage: 15 TITRATED, PRN
     Route: 042
     Dates: start: 20130618, end: 20130619
  74. VASOPRESSIN [Concomitant]
     Indication: HYPOTENSION
  75. NOREPINEPHRINE [Concomitant]
     Indication: CORONARY ARTERY DISEASE
     Dosage: 15 TITRATED, PRN
     Route: 042
     Dates: start: 20130618, end: 20130619
  76. NOREPINEPHRINE [Concomitant]
     Indication: HYPOTENSION
  77. INAPSINE [Concomitant]
     Indication: CORONARY ARTERY DISEASE
     Dosage: 0.5 MG, ONCE
     Route: 042
     Dates: start: 20130618, end: 20130618
  78. INAPSINE [Concomitant]
     Indication: PROPHYLAXIS OF NAUSEA AND VOMITING
  79. MAGNESIUM SULFATE [Concomitant]
     Indication: CORONARY ARTERY DISEASE
     Dosage: 2 G, ONCE
     Route: 042
     Dates: start: 20130618, end: 20130619
  80. MAGNESIUM SULFATE [Concomitant]
     Indication: HYPOMAGNESAEMIA
  81. DEXAMETHASONE [Concomitant]
     Indication: CORONARY ARTERY DISEASE
     Dosage: 4 MG, ONCE
     Route: 042
     Dates: start: 20130618, end: 20130618
  82. DEXAMETHASONE [Concomitant]
     Indication: PAIN PROPHYLAXIS
  83. ATORVASTATIN [Concomitant]
     Indication: HYPERLIPIDAEMIA
     Dosage: 5 MG, QD
     Route: 048
     Dates: start: 2013, end: 20140202
  84. COLACE [Concomitant]
     Indication: HAEMORRHAGIC STROKE
     Dosage: 200 MG, QHS
     Route: 048
     Dates: start: 20130706, end: 20130803
  85. COLACE [Concomitant]
     Indication: CONSTIPATION PROPHYLAXIS

REACTIONS (4)
  - Coronary artery disease [Recovered/Resolved]
  - Ischaemic stroke [Recovered/Resolved with Sequelae]
  - Haemorrhagic stroke [Recovered/Resolved with Sequelae]
  - Transient ischaemic attack [Recovered/Resolved]
